FAERS Safety Report 17879728 (Version 1)
Quarter: 2020Q2

REPORT INFORMATION
  Report Type: Spontaneous
  Country: US (occurrence: US)
  Receive Date: 20200610
  Receipt Date: 20200610
  Transmission Date: 20200714
  Serious: No
  Sender: FDA-Public Use
  Company Number: US-PFIZER INC-2020157447

PATIENT

DRUGS (2)
  1. NOREPINEPHRINE BITARTRATE. [Suspect]
     Active Substance: NOREPINEPHRINE BITARTRATE
     Indication: HYPOTENSION
     Dosage: 32 MG/250 ML (128 MCG/ML)
  2. NOREPINEPHRINE BITARTRATE. [Suspect]
     Active Substance: NOREPINEPHRINE BITARTRATE
     Dosage: 4 MG/250 ML (16 MCG/ML)

REACTIONS (3)
  - Product selection error [Unknown]
  - Device programming error [Unknown]
  - Blood pressure fluctuation [Unknown]
